FAERS Safety Report 10194891 (Version 1)
Quarter: 2014Q2

REPORT INFORMATION
  Report Type: Spontaneous
  Country: US (occurrence: US)
  Receive Date: 20140526
  Receipt Date: 20140526
  Transmission Date: 20141212
  Serious: No
  Sender: FDA-Public Use
  Company Number: US-PFIZER INC-2014141636

PATIENT
  Age: 59 Year
  Sex: Female
  Weight: 63.49 kg

DRUGS (4)
  1. LYRICA [Suspect]
     Indication: NERVE INJURY
     Dosage: 75 MG, 2X/DAY
     Dates: start: 20140512, end: 201405
  2. LYRICA [Suspect]
     Indication: DIABETES MELLITUS
  3. LISINOPRIL [Concomitant]
     Indication: CARDIAC DISORDER
     Dosage: 20 MG, DAILY
  4. ATIVAN [Concomitant]
     Indication: ANXIETY
     Dosage: UNK

REACTIONS (1)
  - Pain [Unknown]
